FAERS Safety Report 24549123 (Version 1)
Quarter: 2024Q4

REPORT INFORMATION
  Report Type: Spontaneous
  Country: CN (occurrence: CN)
  Receive Date: 20241025
  Receipt Date: 20241025
  Transmission Date: 20250114
  Serious: Yes (Life-Threatening, Hospitalization, Other)
  Sender: PFIZER
  Company Number: CN-PFIZER INC-PV202400137721

PATIENT
  Age: 43 Year
  Sex: Female
  Weight: 56.5 kg

DRUGS (2)
  1. VFEND [Suspect]
     Active Substance: VORICONAZOLE
     Indication: Fungal peritonitis
     Dosage: 400 MG, 2X/DAY (FIRST TIME)
     Dates: start: 20240915
  2. VFEND [Suspect]
     Active Substance: VORICONAZOLE
     Dosage: 200 MG, 2X/DAY
     Route: 048
     Dates: start: 20240915, end: 20240927

REACTIONS (4)
  - Supraventricular tachycardia [Recovering/Resolving]
  - Cyanosis [Recovering/Resolving]
  - Cardiac discomfort [Recovering/Resolving]
  - Off label use [Unknown]

NARRATIVE: CASE EVENT DATE: 20240915
